FAERS Safety Report 15177886 (Version 2)
Quarter: 2018Q4

REPORT INFORMATION
  Report Type: Report from Study
  Country: CA (occurrence: CA)
  Receive Date: 20180720
  Receipt Date: 20181010
  Transmission Date: 20190204
  Serious: Yes (Other)
  Sender: FDA-Public Use
  Company Number: CA-TAIHO ONCOLOGY  INC-EU-2018-01020

PATIENT
  Sex: Male
  Weight: 100.6 kg

DRUGS (1)
  1. LONSURF [Suspect]
     Active Substance: TIPIRACIL HYDROCHLORIDE\TRIFLURIDINE
     Indication: COLORECTAL CANCER METASTATIC
     Dosage: CYCLE 1
     Route: 048
     Dates: start: 20180620, end: 20180701

REACTIONS (4)
  - Atrial fibrillation [Recovering/Resolving]
  - Fall [Unknown]
  - Dizziness [Recovering/Resolving]
  - Fatigue [Recovering/Resolving]

NARRATIVE: CASE EVENT DATE: 2018
